FAERS Safety Report 7653701-6 (Version None)
Quarter: 2011Q3

REPORT INFORMATION
  Report Type: 
  Country: None (occurrence: None)
  Receive Date: 20110803
  Receipt Date: 20110714
  Transmission Date: 20111222
  Serious: Yes (Hospitalization)
  Sender: FDA-Public Use
  Company Number: US-GLAXOSMITHKLINE-A0835303A

PATIENT
  Age: 73 Year
  Sex: Female

DRUGS (1)
  1. AVANDIA [Suspect]
     Indication: DIABETES MELLITUS
     Dosage: 8MG UNKNOWN
     Route: 048
     Dates: end: 20080102

REACTIONS (8)
  - MYOCARDIAL INFARCTION [None]
  - CORONARY ARTERY DISEASE [None]
  - TRICUSPID VALVE INCOMPETENCE [None]
  - CORONARY ARTERY OCCLUSION [None]
  - VENTRICULAR TACHYCARDIA [None]
  - MITRAL VALVE INCOMPETENCE [None]
  - LEFT VENTRICULAR DYSFUNCTION [None]
  - CARDIAC FAILURE CONGESTIVE [None]
